FAERS Safety Report 8589841 (Version 4)
Quarter: 2013Q4

REPORT INFORMATION
  Report Type: Report from Study
  Country: AU (occurrence: AU)
  Receive Date: 20120515
  Receipt Date: 20131108
  Transmission Date: 20140711
  Serious: Yes (Life-Threatening, Hospitalization)
  Sender: FDA-Public Use
  Company Number: AU-009507513-2012SP024879

PATIENT
  Age: 55 Year
  Sex: Male
  Weight: 83 kg

DRUGS (5)
  1. TEMOZOLOMIDE [Suspect]
     Indication: GLIOMA
     Dosage: 300 MG, UNKNOWN
     Route: 048
     Dates: start: 20111114, end: 20120116
  2. DEXAMETHASONE [Concomitant]
     Indication: ASTROCYTOMA
     Dosage: 0.5 MG, QOD
     Route: 048
     Dates: start: 20080122
  3. CONTROLOC [Concomitant]
     Indication: GASTROOESOPHAGEAL REFLUX DISEASE
     Dosage: UPDATE (21MAY2012)
     Route: 048
     Dates: start: 20080129
  4. ALLOPURINOL [Concomitant]
     Indication: GOUT
     Dosage: UPDATE (21MAY2012)
     Route: 048
     Dates: start: 20080307
  5. LEVETIRACETAM [Concomitant]
     Indication: CONVULSION
     Dosage: UPDATE (21MAY2012)
     Route: 048
     Dates: start: 20110721

REACTIONS (1)
  - Pulmonary embolism [Not Recovered/Not Resolved]
